FAERS Safety Report 5243061-2 (Version None)
Quarter: 2007Q1

REPORT INFORMATION
  Report Type: 
  Country: None (occurrence: None)
  Receive Date: 20070220
  Receipt Date: 20070220
  Transmission Date: 20070707
  Serious: No
  Sender: FDA-Public Use
  Company Number: None

PATIENT
  Age: 23 Year
  Sex: Male

DRUGS (2)
  1. PEG - 3350 - WALGREENS 281-992-3431 RX#1126347-09507 [Suspect]
     Indication: CEREBRAL PALSY
     Dosage: 17 GRAM BID PO IN MILK
     Route: 048
     Dates: start: 20070123
  2. PEG - 3350 - WALGREENS 281-992-3431 RX#1126347-09507 [Suspect]
     Indication: CONSTIPATION
     Dosage: 17 GRAM BID PO IN MILK
     Route: 048
     Dates: start: 20070123

REACTIONS (1)
  - VOMITING PROJECTILE [None]
